FAERS Safety Report 4817952-8 (Version None)
Quarter: 2005Q4

REPORT INFORMATION
  Report Type: 
  Country: None (occurrence: None)
  Receive Date: 20051102
  Receipt Date: 20051025
  Transmission Date: 20060501
  Serious: Yes (Hospitalization)
  Sender: FDA-Public Use
  Company Number: US-JNJFOC-20051005798

PATIENT
  Age: 85 Year
  Sex: Female

DRUGS (10)
  1. TYLENOL (CAPLET) [Suspect]
     Route: 048
  2. TYLENOL (CAPLET) [Suspect]
     Indication: PAIN
     Dosage: 500 MG PO QD-BID
     Route: 048
  3. VERAPAMIL [Concomitant]
     Route: 048
  4. DIGOXIN [Concomitant]
     Route: 048
  5. AVANDIA [Concomitant]
  6. HYDROCHLOROTHIAZIDE [Concomitant]
     Route: 048
  7. ASCORBIC ACID [Concomitant]
     Route: 048
  8. VITAMIN B-12 [Concomitant]
     Route: 048
  9. VITAMIN E [Concomitant]
     Route: 048
  10. PRANDIN [Concomitant]
     Route: 048

REACTIONS (3)
  - DIFFICULTY IN WALKING [None]
  - HYPERTENSION [None]
  - LOSS OF CONSCIOUSNESS [None]
